FAERS Safety Report 8621818-5 (Version None)
Quarter: 2012Q3

REPORT INFORMATION
  Report Type: 
  Country: None (occurrence: None)
  Receive Date: 20120822
  Receipt Date: 20120822
  Transmission Date: 20120928
  Serious: Yes (Hospitalization, Disabling, Other)
  Sender: FDA-Public Use
  Company Number: None

PATIENT
  Age: 62 Year
  Sex: Female
  Weight: 58.9676 kg

DRUGS (1)
  1. DULOXETINE HYDROCHLORIDE [Suspect]
     Indication: MAJOR DEPRESSION
     Dosage: 60 MG, DAILY, PO
     Route: 048

REACTIONS (6)
  - DELUSION [None]
  - MANIA [None]
  - EUPHORIC MOOD [None]
  - AGITATION [None]
  - WITHDRAWAL SYNDROME [None]
  - PSYCHOTIC DISORDER [None]
